FAERS Safety Report 8274938-1 (Version None)
Quarter: 2012Q2

REPORT INFORMATION
  Report Type: 
  Country: None (occurrence: None)
  Receive Date: 20120411
  Receipt Date: 20120402
  Transmission Date: 20120825
  Serious: Yes (Other)
  Sender: FDA-Public Use
  Company Number: US-VERTEX PHARMACEUTICALS INC.-AE-2012-004699

PATIENT
  Sex: Male

DRUGS (3)
  1. INTERFERON [Concomitant]
     Indication: HEPATITIS C
     Dates: start: 20120201
  2. RIBAVIRIN [Concomitant]
     Indication: HEPATITIS C
     Dates: start: 20120201
  3. INCIVEK [Suspect]
     Indication: HEPATITIS C
     Dates: start: 20120201

REACTIONS (3)
  - ANAEMIA [None]
  - EXFOLIATIVE RASH [None]
  - ORAL DISORDER [None]
